FAERS Safety Report 11663009 (Version 1)
Quarter: 2015Q4

REPORT INFORMATION
  Report Type: Spontaneous
  Country: US (occurrence: US)
  Receive Date: 20151027
  Receipt Date: 20151027
  Transmission Date: 20160304
  Serious: No
  Sender: FDA-Public Use
  Company Number: US-MEDA-2010050029

PATIENT
  Age: 55 Year
  Sex: Female

DRUGS (10)
  1. THYROID MEDICATION [Concomitant]
     Active Substance: UNSPECIFIED INGREDIENT
  2. COMPAZINE [Concomitant]
     Active Substance: PROCHLORPERAZINE MALEATE
  3. PREVACID [Concomitant]
     Active Substance: LANSOPRAZOLE
  4. TRAZODONE [Concomitant]
     Active Substance: TRAZODONE HYDROCHLORIDE
  5. FENTANYL. [Suspect]
     Active Substance: FENTANYL
     Indication: CANCER PAIN
     Dosage: 200 MCG/HR
     Route: 062
     Dates: end: 201005
  6. ONSOLIS [Suspect]
     Active Substance: FENTANYL CITRATE
     Indication: CANCER PAIN
     Route: 002
     Dates: start: 20100126, end: 20100306
  7. SANDOSTATIN [Concomitant]
     Active Substance: OCTREOTIDE ACETATE
     Indication: CHEMOTHERAPY
  8. PAXIL [Concomitant]
     Active Substance: PAROXETINE HYDROCHLORIDE
  9. AMBIEN [Concomitant]
     Active Substance: ZOLPIDEM TARTRATE
  10. ONSOLIS [Suspect]
     Active Substance: FENTANYL CITRATE
     Indication: CANCER PAIN
     Route: 002
     Dates: start: 20100306

REACTIONS (2)
  - Urticaria [Not Recovered/Not Resolved]
  - Rash [Not Recovered/Not Resolved]

NARRATIVE: CASE EVENT DATE: 20100509
